FAERS Safety Report 7227478-2 (Version None)
Quarter: 2011Q1

REPORT INFORMATION
  Report Type: 
  Country: None (occurrence: None)
  Receive Date: 20110105
  Receipt Date: 20101221
  Transmission Date: 20110831
  Serious: Yes (Hospitalization)
  Sender: FDA-Public Use
  Company Number: 2010SP057552

PATIENT
  Age: 70 Year
  Sex: Male
  Weight: 63 kg

DRUGS (9)
  1. DIGILANOGEN (DESLANOSIDE) (DESLANOSIDE) [Suspect]
     Dosage: 0.4 MG; INDRP
     Route: 041
     Dates: start: 20101021, end: 20101023
  2. PENTAZOCINE LACTATE [Concomitant]
  3. HEPARIN SODIUM [Suspect]
     Dosage: 5000 IU; INDRP
     Route: 041
     Dates: start: 20101020, end: 20101023
  4. ESLAX (ROCURONIUM BROMIDE /01245702/) [Suspect]
     Indication: NEUROMUSCULAR BLOCKING THERAPY
     Dosage: 10 MG; IV
     Route: 042
     Dates: start: 20101020
  5. ATARAX [Concomitant]
  6. BISOLVON [Concomitant]
  7. BRIDION (SUGAMMADEX /00000000/) [Suspect]
     Indication: NEUROMUSCULAR BLOCKADE REVERSAL
     Dosage: 200 MG' IV
     Route: 042
     Dates: start: 20101020
  8. CEFAMEZIN (CEFAZOLIN SODIUM) [Suspect]
     Dosage: 1 GM; BID; INDRP
     Route: 041
     Dates: start: 20101020, end: 20101023
  9. ATROPINE SULFATE [Concomitant]

REACTIONS (2)
  - BLOOD BILIRUBIN INCREASED [None]
  - JAUNDICE [None]
